FAERS Safety Report 24848388 (Version 2)
Quarter: 2025Q1

REPORT INFORMATION
  Report Type: Other
  Country: US (occurrence: US)
  Receive Date: 20250116
  Receipt Date: 20250127
  Transmission Date: 20250409
  Serious: Yes (Death)
  Sender: TOLMAR
  Company Number: US-TOLMAR, INC.-25US055418

PATIENT
  Sex: Male

DRUGS (1)
  1. ELIGARD [Suspect]
     Active Substance: LEUPROLIDE ACETATE
     Indication: Prostate cancer
     Dosage: 30 MILLIGRAM, Q 4 MONTH
     Route: 058
     Dates: start: 20210528

REACTIONS (2)
  - Prostate cancer metastatic [Fatal]
  - Metastases to bone [Fatal]
